FAERS Safety Report 21289629 (Version 2)
Quarter: 2022Q3

REPORT INFORMATION
  Report Type: Report from Study
  Country: US (occurrence: US)
  Receive Date: 20220902
  Receipt Date: 20220923
  Transmission Date: 20221026
  Serious: Yes (Hospitalization, Other)
  Sender: FDA-Public Use
  Company Number: US-BRISTOL-MYERS SQUIBB COMPANY-2022-095280

PATIENT
  Age: 78 Year
  Sex: Female
  Weight: 56.9 kg

DRUGS (33)
  1. AZACITIDINE [Suspect]
     Active Substance: AZACITIDINE
     Indication: Acute myeloid leukaemia
     Dosage: 75 MG/M^2 LAST DOSE 09-AUG-2022
     Route: 065
     Dates: start: 20210803
  2. AZACITIDINE [Suspect]
     Active Substance: AZACITIDINE
     Dosage: T 75 MG/M2
     Route: 065
     Dates: start: 20210811
  3. VENETOCLAX [Suspect]
     Active Substance: VENETOCLAX
     Indication: Acute myeloid leukaemia
     Dosage: QD LAST DOSE ON 11-AUG-2021
     Route: 065
     Dates: start: 20210803, end: 20210811
  4. VENETOCLAX [Suspect]
     Active Substance: VENETOCLAX
     Route: 065
     Dates: start: 20210811
  5. TTI-622 [Suspect]
     Active Substance: TTI-622
     Indication: Acute myeloid leukaemia
     Route: 065
     Dates: start: 20210803, end: 20210810
  6. TTI-622 [Suspect]
     Active Substance: TTI-622
     Route: 065
     Dates: start: 20210811
  7. LISINOPRIL [Concomitant]
     Active Substance: LISINOPRIL
  8. LISINOPRIL [Concomitant]
     Active Substance: LISINOPRIL
     Indication: Hypertension
     Route: 065
  9. DOCUSATE SODIUM [Concomitant]
     Active Substance: DOCUSATE SODIUM
  10. DOCUSATE SODIUM [Concomitant]
     Active Substance: DOCUSATE SODIUM
     Indication: Constipation
     Route: 065
  11. PRIMODIL [AMLODIPINE] [Concomitant]
  12. PRIMODIL [AMLODIPINE] [Concomitant]
     Indication: Hypertension
     Route: 065
  13. POTASSIUM CHLORIDE [Concomitant]
     Active Substance: POTASSIUM CHLORIDE
  14. POTASSIUM CHLORIDE [Concomitant]
     Active Substance: POTASSIUM CHLORIDE
     Indication: Hypertension
     Route: 065
  15. CEPHALEXIN [Concomitant]
     Active Substance: CEPHALEXIN
  16. CEPHALEXIN [Concomitant]
     Active Substance: CEPHALEXIN
     Indication: Cellulitis
     Route: 065
  17. METOPROLOL [Concomitant]
     Active Substance: METOPROLOL
  18. METOPROLOL [Concomitant]
     Active Substance: METOPROLOL
     Indication: Hypertension
     Route: 065
  19. CALCIUM GLUCONATE [Concomitant]
     Active Substance: CALCIUM GLUCONATE
  20. CALCIUM GLUCONATE [Concomitant]
     Active Substance: CALCIUM GLUCONATE
     Indication: Hypocalcaemia
     Route: 065
  21. ACYCLOVIR [Concomitant]
     Active Substance: ACYCLOVIR
  22. ACYCLOVIR [Concomitant]
     Active Substance: ACYCLOVIR
     Indication: Antiviral prophylaxis
     Route: 065
  23. ALUROL [ALLOPURINOL] [Concomitant]
  24. ALUROL [ALLOPURINOL] [Concomitant]
     Indication: Prophylaxis
     Route: 065
  25. VANCOMYCIN [Concomitant]
     Active Substance: VANCOMYCIN
  26. VANCOMYCIN [Concomitant]
     Active Substance: VANCOMYCIN
     Indication: Cellulitis
     Route: 065
  27. TEMAZEPAM [Concomitant]
     Active Substance: TEMAZEPAM
  28. TEMAZEPAM [Concomitant]
     Active Substance: TEMAZEPAM
     Indication: Insomnia
     Route: 065
  29. HYDRALAZINE [HYDRALAZINE HYDROCHLORIDE] [Concomitant]
  30. HYDRALAZINE [HYDRALAZINE HYDROCHLORIDE] [Concomitant]
     Indication: Hypertension
     Route: 065
  31. MAGNESIUM SULFATE [Concomitant]
     Active Substance: MAGNESIUM SULFATE
  32. MAGNESIUM SULFATE [Concomitant]
     Active Substance: MAGNESIUM SULFATE
     Indication: Hypomagnesaemia
     Route: 065
  33. ACETAMINOPHEN [Concomitant]
     Active Substance: ACETAMINOPHEN
     Indication: Pain
     Route: 065

REACTIONS (1)
  - Syncope [Not Recovered/Not Resolved]

NARRATIVE: CASE EVENT DATE: 20210811
